FAERS Safety Report 6266641-4 (Version None)
Quarter: 2009Q3

REPORT INFORMATION
  Report Type: 
  Country: None (occurrence: None)
  Receive Date: 20090710
  Receipt Date: 20090702
  Transmission Date: 20100115
  Serious: Yes (Hospitalization)
  Sender: FDA-Public Use
  Company Number: PIR# 0907018

PATIENT
  Age: 35 Year
  Sex: Female

DRUGS (1)
  1. CEFTRIAXONE [Suspect]
     Dosage: 2G/DAY FOR 9 DAYS

REACTIONS (2)
  - CHOLELITHIASIS [None]
  - PANCREATITIS ACUTE [None]
